FAERS Safety Report 15000329 (Version 2)
Quarter: 2018Q2

REPORT INFORMATION
  Report Type: Spontaneous
  Country: US (occurrence: US)
  Receive Date: 20180612
  Receipt Date: 20180629
  Transmission Date: 20180711
  Serious: Yes (Hospitalization, Other)
  Sender: FDA-Public Use
  Company Number: US-JAZZ-2018-US-009237

PATIENT
  Age: 46 Year
  Sex: Female

DRUGS (12)
  1. OXYCODONE [Concomitant]
     Active Substance: OXYCODONE
  2. DULOXETINE. [Concomitant]
     Active Substance: DULOXETINE
     Indication: PRODUCT USED FOR UNKNOWN INDICATION
  3. POTASSIUM [Suspect]
     Active Substance: POTASSIUM
     Indication: PRODUCT USED FOR UNKNOWN INDICATION
  4. DOXEPIN [Concomitant]
     Active Substance: DOXEPIN
     Indication: PRODUCT USED FOR UNKNOWN INDICATION
  5. ACETAMINOPHEN. [Concomitant]
     Active Substance: ACETAMINOPHEN
  6. CLONIDINE. [Concomitant]
     Active Substance: CLONIDINE
  7. SERTRALINE [Concomitant]
     Active Substance: SERTRALINE HYDROCHLORIDE
     Indication: PRODUCT USED FOR UNKNOWN INDICATION
  8. BUSPIRONE [Concomitant]
     Active Substance: BUSPIRONE HYDROCHLORIDE
  9. HCTZ [Concomitant]
     Active Substance: HYDROCHLOROTHIAZIDE
     Indication: PRODUCT USED FOR UNKNOWN INDICATION
  10. XYREM [Suspect]
     Active Substance: SODIUM OXYBATE
     Indication: PRODUCT USED FOR UNKNOWN INDICATION
     Route: 048
  11. DEXTROAMPHETAMINE SULFATE. [Concomitant]
     Active Substance: DEXTROAMPHETAMINE SULFATE
     Indication: PRODUCT USED FOR UNKNOWN INDICATION
  12. METHAMPHETAMINE [Concomitant]
     Active Substance: METHAMPHETAMINE
     Indication: PRODUCT USED FOR UNKNOWN INDICATION

REACTIONS (14)
  - Somnolence [Recovered/Resolved]
  - Suicide attempt [Unknown]
  - Conduction disorder [Recovered/Resolved]
  - Coma [Recovered/Resolved]
  - Vomiting [Recovered/Resolved]
  - Hypoaesthesia oral [Recovered/Resolved]
  - Muscle spasms [Recovered/Resolved]
  - Lethargy [Recovered/Resolved]
  - Overdose [Unknown]
  - Blood potassium decreased [Recovered/Resolved]
  - Musculoskeletal stiffness [Recovered/Resolved]
  - Blood calcium decreased [Recovered/Resolved]
  - Blood creatinine increased [Recovered/Resolved]
  - Bradycardia [Recovered/Resolved]
